FAERS Safety Report 7309163-1 (Version None)
Quarter: 2011Q1

REPORT INFORMATION
  Report Type: 
  Country: None (occurrence: None)
  Receive Date: 20110223
  Receipt Date: 20110211
  Transmission Date: 20110831
  Serious: Yes (Other)
  Sender: FDA-Public Use
  Company Number: FR-ELI_LILLY_AND_COMPANY-FR201102002964

PATIENT
  Sex: Female

DRUGS (2)
  1. GEMZAR [Suspect]
     Indication: LEIOMYOSARCOMA METASTATIC
     Dosage: 1736 MG, UNK
     Route: 042
     Dates: start: 20101202
  2. TAXOTERE [Concomitant]
     Indication: METASTASES TO LUNG
     Dosage: 132 MG, UNK
     Route: 042
     Dates: start: 20101202

REACTIONS (4)
  - DERMATITIS EXFOLIATIVE [None]
  - SKIN EXFOLIATION [None]
  - OFF LABEL USE [None]
  - RASH [None]
